FAERS Safety Report 21779076 (Version 2)
Quarter: 2023Q1

REPORT INFORMATION
  Report Type: Report from Study
  Country: US (occurrence: US)
  Receive Date: 20221226
  Receipt Date: 20230318
  Transmission Date: 20230417
  Serious: No
  Sender: FDA-Public Use
  Company Number: US-ABBVIE-4202656

PATIENT
  Age: 55 Year
  Sex: Female

DRUGS (15)
  1. SKYRIZI [Suspect]
     Active Substance: RISANKIZUMAB-RZAA
     Indication: Psoriasis
     Dosage: FORM STRENGTH: 150 MILLIGRAM
     Route: 058
     Dates: start: 20220713, end: 20221005
  2. SKYRIZI [Suspect]
     Active Substance: RISANKIZUMAB-RZAA
     Dosage: FORM STRENGTH: 150 MILLIGRAM
     Route: 058
     Dates: start: 20221109
  3. CITALOPRAM HYDROBROMIDE [Concomitant]
     Active Substance: CITALOPRAM HYDROBROMIDE
     Indication: Product used for unknown indication
  4. LUTEIN 10 MG TABLET [Concomitant]
     Indication: Product used for unknown indication
  5. FISH OIL 100-150 MG CAPSULE [Concomitant]
     Indication: Product used for unknown indication
     Dosage: 100-150 MG
  6. CALCIUM + D 500MG-1000 TAB CHEW [Concomitant]
     Indication: Product used for unknown indication
     Dosage: 500MG TO 1000 TAB CHEW
  7. LEVOTHYROXINE 50 MCG CAPSULE [Concomitant]
     Indication: Product used for unknown indication
  8. METFORMIN HYDROCHLORIDE [Concomitant]
     Active Substance: METFORMIN HYDROCHLORIDE
     Indication: Product used for unknown indication
  9. MUPIROCIN 2 % CREAM (G) [Concomitant]
     Indication: Product used for unknown indication
     Dosage: 2 % CREAM (G)
  10. DIPHENHYDRAMINE HCL 25 MG CAPSULE [Concomitant]
     Indication: Product used for unknown indication
  11. CELEBREX 100 MG CAPSULE [Concomitant]
     Indication: Product used for unknown indication
  12. PFIZER-BIONTECH COVID-19 VACCINE [Concomitant]
     Active Substance: TOZINAMERAN
     Indication: COVID-19 immunisation
     Dosage: FREQUENCY : ONCE
     Route: 030
  13. XYZAL 5 MG TABLET [Concomitant]
     Indication: Product used for unknown indication
  14. HALOBETASOL PROPIONATE [Concomitant]
     Active Substance: HALOBETASOL PROPIONATE
     Indication: Product used for unknown indication
  15. VITAMIN D3 50 MCG CAPSULE [Concomitant]
     Indication: Product used for unknown indication

REACTIONS (4)
  - COVID-19 [Recovered/Resolved]
  - Psoriasis [Recovering/Resolving]
  - Rosacea [Unknown]
  - Therapeutic response shortened [Unknown]

NARRATIVE: CASE EVENT DATE: 20221001
